FAERS Safety Report 4947055-3 (Version None)
Quarter: 2006Q1

REPORT INFORMATION
  Report Type: 
  Country: None (occurrence: None)
  Receive Date: 20060317
  Receipt Date: 20060307
  Transmission Date: 20060701
  Serious: Yes (Disabling)
  Sender: FDA-Public Use
  Company Number: AU-BRISTOL-MYERS SQUIBB COMPANY-13310446

PATIENT
  Age: 65 Year
  Sex: Male

DRUGS (2)
  1. SINEMET [Suspect]
     Route: 048
  2. ENTACAPONE [Interacting]
     Indication: PARKINSON'S DISEASE
     Route: 048
     Dates: start: 20050315

REACTIONS (4)
  - DRUG INTERACTION [None]
  - FALL [None]
  - FREEZING PHENOMENON [None]
  - HOT FLUSH [None]
